FAERS Safety Report 21204842 (Version 1)
Quarter: 2022Q3

REPORT INFORMATION
  Report Type: Spontaneous
  Country: NO (occurrence: NO)
  Receive Date: 20220812
  Receipt Date: 20220812
  Transmission Date: 20221027
  Serious: Yes (Hospitalization, Other)
  Sender: FDA-Public Use
  Company Number: None

PATIENT

DRUGS (1)
  1. GRAZAX [Suspect]
     Active Substance: PHLEUM PRATENSE POLLEN
     Indication: Hypersensitivity
     Dosage: UNK UNK, QD
     Route: 065
     Dates: start: 202111, end: 202201

REACTIONS (1)
  - Terminal ileitis [Recovering/Resolving]

NARRATIVE: CASE EVENT DATE: 20211101
